FAERS Safety Report 18621069 (Version 1)
Quarter: 2020Q4

REPORT INFORMATION
  Report Type: Spontaneous
  Country: US (occurrence: US)
  Receive Date: 20201216
  Receipt Date: 20201216
  Transmission Date: 20210114
  Serious: Yes (Other)
  Sender: FDA-Public Use
  Company Number: US-ALXN-A202018306

PATIENT
  Sex: Male

DRUGS (1)
  1. ULTOMIRIS [Suspect]
     Active Substance: RAVULIZUMAB-CWVZ
     Indication: ATYPICAL HAEMOLYTIC URAEMIC SYNDROME
     Dosage: 100 MG, UNK
     Route: 042

REACTIONS (3)
  - Blood disorder [Unknown]
  - Suspected COVID-19 [Unknown]
  - Dialysis [Unknown]

NARRATIVE: CASE EVENT DATE: 202008
